FAERS Safety Report 5933533-7 (Version None)
Quarter: 2008Q4

REPORT INFORMATION
  Report Type: 
  Country: None (occurrence: None)
  Receive Date: 20081023
  Receipt Date: 20060515
  Transmission Date: 20090506
  Serious: Yes (Hospitalization, Other)
  Sender: FDA-Public Use
  Company Number: 2006AL002062

PATIENT
  Age: 80 Year
  Sex: Female

DRUGS (4)
  1. DICLOFENAC SODIUM [Suspect]
     Dosage: 75 MG; BID, PO
     Route: 048
     Dates: start: 20000101, end: 20060323
  2. CALCICHEW [Concomitant]
  3. ALENDRONIC ACID [Concomitant]
  4. TEMAZEPAM [Concomitant]

REACTIONS (4)
  - CONFUSIONAL STATE [None]
  - DEHYDRATION [None]
  - JAUNDICE [None]
  - RENAL IMPAIRMENT [None]
